FAERS Safety Report 12494265 (Version 5)
Quarter: 2016Q3

REPORT INFORMATION
  Report Type: Spontaneous
  Country: US (occurrence: US)
  Receive Date: 20160623
  Receipt Date: 20160721
  Transmission Date: 20161109
  Serious: Yes (Life-Threatening, Hospitalization, Other)
  Sender: FDA-Public Use
  Company Number: US-BAUSCH-BL-2016-014931

PATIENT
  Age: 40 Year
  Sex: Male

DRUGS (6)
  1. IRINOTECAN [Suspect]
     Active Substance: IRINOTECAN
     Indication: COLORECTAL CANCER
     Dosage: OVER 90 MIN ON DAY 1; CYCLE REPEATED EVERY 14 DAYS
     Route: 042
     Dates: start: 2015
  2. AVASTIN [Suspect]
     Active Substance: BEVACIZUMAB
     Indication: COLORECTAL CANCER
     Route: 042
     Dates: start: 2015
  3. FLUOROURACIL. [Suspect]
     Active Substance: FLUOROURACIL
     Dosage: CONTINUOUS INFUSION OVER 46 H BEGINNING ON DAY 1; CYCLE REPEATED EVERY 14 DAYS
     Route: 042
     Dates: start: 2015, end: 2015
  4. LORAZEPAM. [Suspect]
     Active Substance: LORAZEPAM
     Indication: VOMITING
     Route: 065
     Dates: start: 2015
  5. FLUOROURACIL. [Suspect]
     Active Substance: FLUOROURACIL
     Indication: COLORECTAL CANCER
     Dosage: ON DAY 1; CYCLE REPEATED EVERY 14 DAYS
     Route: 040
     Dates: start: 2015, end: 2015
  6. FOLINIC ACID [Suspect]
     Active Substance: LEUCOVORIN
     Indication: COLORECTAL CANCER
     Dosage: OVER 2 H ON DAY 1; CYCLE REPEATED EVERY 14 DAYS
     Route: 042
     Dates: start: 2015

REACTIONS (6)
  - Vomiting [Recovered/Resolved]
  - Hyperammonaemic encephalopathy [Recovered/Resolved]
  - Hyperammonaemia [Recovered/Resolved]
  - Somnolence [Recovered/Resolved]
  - Metabolic acidosis [Recovering/Resolving]
  - Nausea [Recovered/Resolved]

NARRATIVE: CASE EVENT DATE: 2015
